FAERS Safety Report 8006164-5 (Version None)
Quarter: 2011Q4

REPORT INFORMATION
  Report Type: 
  Country: None (occurrence: None)
  Receive Date: 20111226
  Receipt Date: 20111215
  Transmission Date: 20120403
  Serious: Yes (Other)
  Sender: FDA-Public Use
  Company Number: FR-BRISTOL-MYERS SQUIBB COMPANY-16118721

PATIENT
  Age: 57 Year
  Sex: Male

DRUGS (2)
  1. FLECAINIDE ACETATE [Concomitant]
  2. IRBESARTAN [Suspect]
     Indication: HYPERTENSION
     Route: 048
     Dates: start: 20040312, end: 20090608

REACTIONS (3)
  - ASTHENIA [None]
  - EXTRASYSTOLES [None]
  - CHEST PAIN [None]
